FAERS Safety Report 6825832-1 (Version None)
Quarter: 2010Q3

REPORT INFORMATION
  Report Type: 
  Country: None (occurrence: None)
  Receive Date: 20100708
  Receipt Date: 20100708
  Transmission Date: 20110219
  Serious: Yes (Other)
  Sender: FDA-Public Use
  Company Number: None

PATIENT
  Age: 48 Year
  Sex: Male
  Weight: 103.4201 kg

DRUGS (2)
  1. CITALOPRAM HYDROBROMIDE [Suspect]
     Indication: DEPRESSION
     Dosage: 20 MG 1 TAB DAILY
  2. CITALOPRAM HYDROBROMIDE [Suspect]

REACTIONS (3)
  - DRUG EFFECT DECREASED [None]
  - IRRITABILITY [None]
  - PRODUCT SUBSTITUTION ISSUE [None]
